FAERS Safety Report 6191197-4 (Version None)
Quarter: 2009Q2

REPORT INFORMATION
  Report Type: 
  Country: None (occurrence: None)
  Receive Date: 20090515
  Receipt Date: 20090507
  Transmission Date: 20091009
  Serious: Yes (Hospitalization)
  Sender: FDA-Public Use
  Company Number: US-CELGENEUS-163-21880-09050533

PATIENT
  Sex: Female

DRUGS (2)
  1. REVLIMID [Suspect]
     Route: 048
     Dates: start: 20061102
  2. REVLIMID [Suspect]
     Route: 048
     Dates: start: 20090505

REACTIONS (3)
  - ARTHRITIS INFECTIVE [None]
  - HYPOAESTHESIA [None]
  - PNEUMONIA [None]
